FAERS Safety Report 8395802 (Version 2)
Quarter: 2013Q4

REPORT INFORMATION
  Report Type: Spontaneous
  Country: US (occurrence: US)
  Receive Date: 20120208
  Receipt Date: 20131231
  Transmission Date: 20140711
  Serious: Yes (Hospitalization)
  Sender: FDA-Public Use
  Company Number: US-GLAXOSMITHKLINE-A0903069A

PATIENT
  Age: 46 Year
  Sex: Female
  Weight: 119.1 kg

DRUGS (1)
  1. AVANDIA [Suspect]
     Indication: DIABETES MELLITUS
     Dosage: 8MG PER DAY
     Route: 048
     Dates: start: 200208, end: 20080820

REACTIONS (4)
  - Acute myocardial infarction [Unknown]
  - Angina pectoris [Unknown]
  - Arteriosclerosis coronary artery [Unknown]
  - Transient ischaemic attack [Unknown]
